FAERS Safety Report 18078879 (Version 1)
Quarter: 2020Q3

REPORT INFORMATION
  Report Type: Spontaneous
  Country: IT (occurrence: IT)
  Receive Date: 20200728
  Receipt Date: 20200728
  Transmission Date: 20201103
  Serious: Yes (Other)
  Sender: FDA-Public Use
  Company Number: IT-ELI_LILLY_AND_COMPANY-IT202007010869

PATIENT
  Age: 65 Year
  Sex: Female

DRUGS (1)
  1. GLUCAGON. [Suspect]
     Active Substance: GLUCAGON
     Indication: HYPOGLYCAEMIA
     Dosage: 1 MG, UNKNOWN
     Route: 042

REACTIONS (2)
  - Hypoglycaemia [Recovered/Resolved]
  - Hypoglycaemic unconsciousness [Recovered/Resolved]
